FAERS Safety Report 7679480-4 (Version None)
Quarter: 2011Q3

REPORT INFORMATION
  Report Type: 
  Country: None (occurrence: None)
  Receive Date: 20110812
  Receipt Date: 20110812
  Transmission Date: 20111222
  Serious: No
  Sender: FDA-Public Use
  Company Number: None

PATIENT
  Age: 25 Year
  Sex: Female
  Weight: 66.224 kg

DRUGS (11)
  1. WARFARIN [Concomitant]
     Route: 048
  2. COUMADIN [Suspect]
     Indication: PULMONARY HYPERTENSION
     Dosage: 7.5MG
     Route: 048
  3. TRETINOIN -RETIN-A- 0.025% TOP GEL [Concomitant]
     Route: 061
  4. LEVONORGESTREL -MIRENA- 20MG/24HR IUD [Concomitant]
  5. METOPROLOL TARTRATE [Concomitant]
  6. MISOPROSTOL [Concomitant]
     Route: 048
  7. INSULIN ASPART -NOVOLOG FLEXPEN [Concomitant]
  8. DIGOXIN [Concomitant]
     Route: 048
  9. TREPROSTINIL -REMODULIN- 1MG/ML [Concomitant]
  10. REVATIO [Concomitant]
     Route: 048
  11. INSULIN GLARGINE -LANTUS SOLOSTAR [Concomitant]

REACTIONS (1)
  - PRODUCT QUALITY ISSUE [None]
